FAERS Safety Report 6171379-8 (Version None)
Quarter: 2009Q2

REPORT INFORMATION
  Report Type: 
  Country: None (occurrence: None)
  Receive Date: 20090427
  Receipt Date: 20090417
  Transmission Date: 20091009
  Serious: Yes (Hospitalization)
  Sender: FDA-Public Use
  Company Number: TIF2009A00021

PATIENT
  Age: 56 Year
  Sex: Female

DRUGS (3)
  1. ACTOPLUS MET [Suspect]
     Indication: DIABETES MELLITUS
     Dosage: (1 TAB., 2 IN 1 D) ORAL
     Route: 048
     Dates: start: 20081229, end: 20090129
  2. PROTAPHANE (INSULIN INJECTION, ISOPHANE) [Suspect]
     Indication: DIABETES MELLITUS
     Dosage: (1 DF, 1IN 1 D) , SUBCUTANEOUS
     Route: 058
     Dates: start: 20080101
  3. NOVOLOG [Suspect]
     Indication: DIABETES MELLITUS
     Dosage: (1 DF, 3 IN 1 D)  SUBCUTANEOUS
     Route: 058
     Dates: start: 20080101

REACTIONS (1)
  - HYPOGLYCAEMIC COMA [None]
